FAERS Safety Report 9193850 (Version 2)
Quarter: 2013Q2

REPORT INFORMATION
  Report Type: Spontaneous
  Country: BR (occurrence: BR)
  Receive Date: 20130327
  Receipt Date: 20130517
  Transmission Date: 20140414
  Serious: Yes (Other)
  Sender: FDA-Public Use
  Company Number: BR-PFIZER INC-2013093182

PATIENT
  Age: 58 Year
  Sex: Female

DRUGS (10)
  1. XALATAN [Suspect]
     Dosage: UNK
     Dates: start: 2002
  2. CARVEDILOL [Concomitant]
  3. COSOPT [Concomitant]
     Dosage: UNK
  4. LOSARTAN [Concomitant]
     Dosage: 50 MG, 1X/DAY
  5. MONOCORDIL [Concomitant]
     Dosage: 1 DF, 2X/DAY
  6. SIMVASTATIN [Concomitant]
     Dosage: 20 MG, 1X/DAY AT HS
  7. GLIFAGE [Concomitant]
     Dosage: UNK
  8. ATENOLOL [Concomitant]
     Dosage: 50 MG, 1X/DAY
  9. ACETYLSALICYLIC ACID [Concomitant]
     Dosage: 100 MBQ, 1X/DAY
  10. NATRILIX [Concomitant]
     Dosage: 1 MG, 1X/DAY

REACTIONS (4)
  - Cardiac disorder [Unknown]
  - Uterine disorder [Not Recovered/Not Resolved]
  - Cardiac disorder [Unknown]
  - Blood pressure increased [Unknown]
